FAERS Safety Report 13239262 (Version 1)
Quarter: 2017Q1

REPORT INFORMATION
  Report Type: Spontaneous
  Country: FR (occurrence: FR)
  Receive Date: 20170216
  Receipt Date: 20170216
  Transmission Date: 20170428
  Serious: Yes (Hospitalization, Other)
  Sender: FDA-Public Use
  Company Number: FR-PFIZER INC-2017063044

PATIENT
  Age: 88 Year
  Sex: Female

DRUGS (15)
  1. EUPRESSYL /00631801/ [Suspect]
     Active Substance: URAPIDIL
  2. SPIRONOLACTONE. [Suspect]
     Active Substance: SPIRONOLACTONE
     Indication: HYPERTENSION
     Dosage: 1 DF, 1X/DAY
     Route: 048
  3. LERCANIDIPINE HYDROCHLORIDE [Suspect]
     Active Substance: LERCANIDIPINE HYDROCHLORIDE
  4. HYDROXYZINE [Suspect]
     Active Substance: HYDROXYZINE HYDROCHLORIDE
  5. PANTOPRAZOLE [Suspect]
     Active Substance: PANTOPRAZOLE SODIUM
     Dosage: 1 DF, 1X/DAY
     Route: 048
  6. DOLIPRANE [Concomitant]
     Active Substance: ACETAMINOPHEN
  7. MIRTAZAPINE. [Suspect]
     Active Substance: MIRTAZAPINE
     Indication: DEPRESSION
     Dosage: 1 DF, 1X/DAY
     Route: 048
  8. LAROXYL [Suspect]
     Active Substance: AMITRIPTYLINE
     Indication: DEPRESSION
     Dosage: 20 GTT, 1X/DAY
     Route: 048
  9. RILMENIDINE [Suspect]
     Active Substance: RILMENIDINE
  10. CETIRIZINE [Suspect]
     Active Substance: CETIRIZINE HYDROCHLORIDE
  11. DIFFU K [Concomitant]
     Active Substance: POTASSIUM CHLORIDE
  12. SPASFON /00934601/ [Concomitant]
     Active Substance: PHLOROGLUCINOL
  13. TEMERIT DUO [Suspect]
     Active Substance: HYDROCHLOROTHIAZIDE\NEBIVOLOL HYDROCHLORIDE
     Indication: HYPERTENSION
     Dosage: 1 DF, 1X/DAY
     Route: 048
  14. DEBRIDAT /00465201/ [Concomitant]
     Active Substance: TRIMEBUTINE MALEATE
  15. MIANSERINE [Suspect]
     Active Substance: MIANSERIN HYDROCHLORIDE

REACTIONS (4)
  - Hypokalaemia [Recovered/Resolved]
  - Facial paralysis [Unknown]
  - Dysarthria [Unknown]
  - Hyponatraemia [Unknown]

NARRATIVE: CASE EVENT DATE: 20160830
